FAERS Safety Report 8327666-8 (Version None)
Quarter: 2012Q2

REPORT INFORMATION
  Report Type: 
  Country: None (occurrence: None)
  Receive Date: 20120502
  Receipt Date: 20120426
  Transmission Date: 20120825
  Serious: No
  Sender: FDA-Public Use
  Company Number: US-PFIZER INC-2012104162

PATIENT
  Sex: Female

DRUGS (1)
  1. IBUPROFEN (ADVIL) [Suspect]
     Indication: PAIN
     Dosage: UNKNOWN DOSE TWO CAPSULE
     Route: 048
     Dates: start: 20120401

REACTIONS (5)
  - LOCALISED OEDEMA [None]
  - SWELLING [None]
  - ABDOMINAL DISCOMFORT [None]
  - NERVOUSNESS [None]
  - SKIN DISORDER [None]
